FAERS Safety Report 23399183 (Version 1)
Quarter: 2024Q1

REPORT INFORMATION
  Report Type: Spontaneous
  Country: US (occurrence: US)
  Receive Date: 20240113
  Receipt Date: 20240113
  Transmission Date: 20240409
  Serious: No
  Sender: FDA-Public Use
  Company Number: US-AMGEN-USASP2024006938

PATIENT
  Age: 60 Year
  Sex: Female

DRUGS (1)
  1. REPATHA [Suspect]
     Active Substance: EVOLOCUMAB
     Indication: Cardiovascular event prophylaxis
     Dosage: UNK UNK, QMO
     Route: 065
     Dates: start: 20231228, end: 20240101

REACTIONS (4)
  - Rubber sensitivity [Unknown]
  - Back pain [Unknown]
  - Urticaria [Unknown]
  - Stomatitis [Unknown]

NARRATIVE: CASE EVENT DATE: 20231229
